FAERS Safety Report 9271949 (Version 4)
Quarter: 2016Q2

REPORT INFORMATION
  Report Type: Spontaneous
  Country: US (occurrence: US)
  Receive Date: 20130506
  Receipt Date: 20160629
  Transmission Date: 20160815
  Serious: Yes (Other)
  Sender: FDA-Public Use
  Company Number: US-009507513-1305USA001566

PATIENT
  Sex: Male

DRUGS (6)
  1. PRILOSEC [Concomitant]
     Active Substance: OMEPRAZOLE MAGNESIUM
     Indication: ANXIETY
     Dosage: UNK
     Route: 048
     Dates: start: 199901, end: 201304
  2. CLEOCIN [Concomitant]
     Active Substance: CLINDAMYCIN PHOSPHATE
     Indication: BACTERIAL INFECTION
     Dosage: UNK
     Route: 065
     Dates: start: 199901, end: 2000
  3. PROPECIA [Suspect]
     Active Substance: FINASTERIDE
     Indication: ANDROGENETIC ALOPECIA
     Dosage: 1 MG, UNK
     Route: 048
     Dates: start: 20000425
  4. PROZAC [Concomitant]
     Active Substance: FLUOXETINE HYDROCHLORIDE
     Indication: ANTIDEPRESSANT THERAPY
     Dosage: UNK
     Route: 065
     Dates: start: 199701, end: 2001
  5. ZYRTEC [Concomitant]
     Active Substance: CETIRIZINE HYDROCHLORIDE
     Indication: HYPERSENSITIVITY
     Dosage: UNK
     Route: 065
     Dates: start: 199705, end: 200305
  6. ZOLOFT [Concomitant]
     Active Substance: SERTRALINE HYDROCHLORIDE
     Indication: ANTIDEPRESSANT THERAPY
     Dosage: UNK
     Route: 065
     Dates: start: 199704, end: 200305

REACTIONS (12)
  - Basal cell carcinoma [Unknown]
  - Cognitive disorder [Not Recovered/Not Resolved]
  - Blood cholesterol increased [Unknown]
  - Sexual dysfunction [Not Recovered/Not Resolved]
  - Gynaecomastia [Unknown]
  - Depression [Unknown]
  - Erectile dysfunction [Unknown]
  - Knee operation [Unknown]
  - Hypertension [Unknown]
  - Anxiety [Unknown]
  - Loss of libido [Unknown]
  - Coronary arterial stent insertion [Unknown]

NARRATIVE: CASE EVENT DATE: 2008
